FAERS Safety Report 8499373-2 (Version None)
Quarter: 2012Q2

REPORT INFORMATION
  Report Type: 
  Country: None (occurrence: None)
  Receive Date: 20120614
  Receipt Date: 20120529
  Transmission Date: 20120825
  Serious: No
  Sender: FDA-Public Use
  Company Number: BTG00043

PATIENT
  Age: 53 Year
  Sex: Female

DRUGS (8)
  1. DIGOXIN [Concomitant]
  2. ALBUTEROL [Concomitant]
  3. HYDROCHLOROTHIAZIDE [Concomitant]
  4. PROPAFENONE HCL [Concomitant]
  5. DIGIFAB [Suspect]
     Indication: TOXICITY TO VARIOUS AGENTS
     Dosage: 1.040 MG
  6. PHENYTOIN [Concomitant]
  7. ROSUVASTATIN [Concomitant]
  8. NIFEDIPINE [Concomitant]

REACTIONS (15)
  - COMPLETED SUICIDE [None]
  - ABDOMINAL PAIN [None]
  - DYSPNOEA [None]
  - CHEST DISCOMFORT [None]
  - SOMNOLENCE [None]
  - MENTAL STATUS CHANGES [None]
  - TACHYCARDIA [None]
  - ARRHYTHMIA [None]
  - VOMITING [None]
  - TOXICITY TO VARIOUS AGENTS [None]
  - DRUG EFFECT DECREASED [None]
  - CARDIAC ARREST [None]
  - NAUSEA [None]
  - ELECTROCARDIOGRAM ST SEGMENT DEPRESSION [None]
  - INTENTIONAL OVERDOSE [None]
